FAERS Safety Report 4402734-1 (Version None)
Quarter: 2004Q3

REPORT INFORMATION
  Report Type: 
  Country: None (occurrence: None)
  Receive Date: 20040721
  Receipt Date: 20031028
  Transmission Date: 20050211
  Serious: No
  Sender: FDA-Public Use
  Company Number: US-BRISTOL-MYERS SQUIBB COMPANY-12420055

PATIENT
  Age: 68 Year
  Sex: Female
  Weight: 57 kg

DRUGS (4)
  1. ESTRACE [Suspect]
     Indication: HORMONE REPLACEMENT THERAPY
     Route: 048
     Dates: start: 19940101
  2. LIPITOR [Concomitant]
     Dates: start: 19980101
  3. INDERAL [Concomitant]
     Dates: start: 20000101
  4. FOSAMAX [Concomitant]
     Dates: start: 20000101

REACTIONS (1)
  - IRRITABILITY [None]
